FAERS Safety Report 7998446-8 (Version None)
Quarter: 2011Q4

REPORT INFORMATION
  Report Type: 
  Country: None (occurrence: None)
  Receive Date: 20111221
  Receipt Date: 20111103
  Transmission Date: 20120403
  Serious: No
  Sender: FDA-Public Use
  Company Number: US-GLAXOSMITHKLINE-A0951871A

PATIENT
  Age: 57 Year
  Sex: Female

DRUGS (2)
  1. SANDIMMUNE [Concomitant]
  2. LOVAZA [Suspect]
     Indication: IMMUNOSUPPRESSANT DRUG LEVEL INCREASED
     Dosage: 1CAP PER DAY
     Route: 048
     Dates: start: 20110701, end: 20110701

REACTIONS (2)
  - MALAISE [None]
  - NAUSEA [None]
